FAERS Safety Report 8496415-5 (Version None)
Quarter: 2012Q3

REPORT INFORMATION
  Report Type: 
  Country: None (occurrence: None)
  Receive Date: 20120709
  Receipt Date: 20120625
  Transmission Date: 20120928
  Serious: Yes (Death)
  Sender: FDA-Public Use
  Company Number: US-MYLANLABS-2012S1013314

PATIENT
  Age: 52 Year
  Sex: Male
  Weight: 62 kg

DRUGS (2)
  1. ZOLPIDEM [Suspect]
     Route: 048
  2. HYDROMORPHONE HCL [Suspect]
     Indication: PAIN
     Route: 042

REACTIONS (2)
  - PULSE ABSENT [None]
  - RESPIRATORY ARREST [None]
